FAERS Safety Report 5693921-3 (Version None)
Quarter: 2008Q2

REPORT INFORMATION
  Report Type: 
  Country: None (occurrence: None)
  Receive Date: 20080403
  Receipt Date: 20080326
  Transmission Date: 20081010
  Serious: Yes (Other)
  Sender: FDA-Public Use
  Company Number: US-PFIZER INC-2008027458

PATIENT
  Sex: Male
  Weight: 131.5 kg

DRUGS (4)
  1. LIPITOR [Suspect]
     Indication: BLOOD CHOLESTEROL INCREASED
     Route: 048
     Dates: start: 20080309, end: 20080301
  2. GLYBURIDE [Concomitant]
     Route: 048
  3. ACETYLSALICYLIC ACID SRT [Concomitant]
     Route: 048
  4. METOPROLOL TARTRATE [Concomitant]
     Route: 048

REACTIONS (5)
  - ABDOMINAL PAIN UPPER [None]
  - ASTHENIA [None]
  - BEDRIDDEN [None]
  - HEADACHE [None]
  - PAIN IN EXTREMITY [None]
